FAERS Safety Report 7576228-9 (Version None)
Quarter: 2011Q2

REPORT INFORMATION
  Report Type: 
  Country: None (occurrence: None)
  Receive Date: 20110628
  Receipt Date: 20110101
  Transmission Date: 20111010
  Serious: Yes (Death, Hospitalization, Other)
  Sender: FDA-Public Use
  Company Number: US-BAYER-200939477NA

PATIENT
  Age: 57 Year
  Sex: Male
  Weight: 83.9 kg

DRUGS (25)
  1. LANOXIN [Concomitant]
     Dosage: 0.125 MG DAILY
     Route: 048
  2. ALDACTONE [Concomitant]
     Dosage: 25 MG DAILY
     Route: 048
     Dates: start: 20030512
  3. ACETYLSALICYLIC ACID SRT [Concomitant]
     Dosage: 81 MG, QD
     Route: 048
  4. BIAXIN [Concomitant]
     Dosage: 500 MG TWO DAILY FOR 10DAYS
     Route: 048
     Dates: start: 20030408
  5. ASPIRIN [Concomitant]
     Dosage: 325 MG DAILY
     Route: 048
     Dates: start: 20020729
  6. ZETIA [Concomitant]
     Dosage: 10 MG
     Route: 048
     Dates: start: 20030512
  7. CARDIZEM [Concomitant]
     Route: 042
  8. GLUCOVANCE [Concomitant]
     Dosage: 2
     Route: 048
     Dates: start: 20010922
  9. NEOSYNEPHRINE [Concomitant]
     Indication: CARDIOPULMONARY BYPASS
     Dosage: UNK
     Dates: start: 20030610, end: 20030610
  10. NEOSYNEPHRINE [Concomitant]
  11. INSULIN [Concomitant]
     Dosage: UNK
     Dates: start: 20020729
  12. EPINEPHRINE [Concomitant]
     Dosage: UNK
     Route: 042
     Dates: start: 20030609
  13. BACITRACIN [Concomitant]
  14. PROTAMINE SULFATE [Concomitant]
     Dosage: 330 MG
     Dates: start: 20030610
  15. LASIX [Concomitant]
     Dosage: 40 MG DAILY
     Route: 048
     Dates: start: 20030512
  16. LASIX [Concomitant]
     Dosage: DAILY DOSE 20 MG
     Route: 042
     Dates: start: 20030610
  17. IMMUNOGLOBULINS [Concomitant]
     Indication: DEMYELINATING POLYNEUROPATHY
     Dosage: EVERY 4 WEEKS, LONG TERM
     Route: 042
  18. ALTACE [Concomitant]
     Dosage: 10 MG TWICE A DAY
     Route: 048
     Dates: start: 20020729
  19. HEPARIN [Concomitant]
     Indication: CARDIOPULMONARY BYPASS
     Dosage: UNK
     Dates: start: 20030610
  20. FLUOXETINE HCL [Concomitant]
     Dosage: 20 MG, QD
     Route: 048
  21. TRASYLOL [Suspect]
     Indication: CORONARY ARTERY BYPASS
     Dosage: 100 ML FOLLOWED BY 25 ML/H
     Route: 042
     Dates: start: 20030610, end: 20030610
  22. AMARYL [Concomitant]
     Dosage: UNK
     Dates: start: 20030527
  23. EPINEPHRINE [Concomitant]
     Dosage: UNK
     Route: 042
     Dates: start: 20030610
  24. HEPARIN [Concomitant]
     Dosage: 10000 MG
     Dates: start: 20030610, end: 20030610
  25. MANNITOL [Concomitant]
     Indication: CARDIOPULMONARY BYPASS
     Dosage: 12.5 G
     Dates: start: 20030610, end: 20030610

REACTIONS (8)
  - RENAL FAILURE ACUTE [None]
  - DEATH [None]
  - UNEVALUABLE EVENT [None]
  - INJURY [None]
  - RENAL FAILURE [None]
  - RENAL IMPAIRMENT [None]
  - RENAL INJURY [None]
  - PAIN [None]
